FAERS Safety Report 10183810 (Version 1)
Quarter: 2014Q2

REPORT INFORMATION
  Report Type: Spontaneous
  Country: US (occurrence: US)
  Receive Date: 20140520
  Receipt Date: 20140520
  Transmission Date: 20141212
  Serious: No
  Sender: FDA-Public Use
  Company Number: US-PFIZER INC-2014134600

PATIENT
  Age: 33 Year
  Sex: Male
  Weight: 126.53 kg

DRUGS (2)
  1. LYRICA [Suspect]
     Indication: NEURALGIA
     Dosage: 75 MG, 2X/DAY
     Dates: start: 2014
  2. LISINOPRIL W/HYDROCHLOROTHIAZIDE [Concomitant]
     Indication: BLOOD PRESSURE ABNORMAL
     Dosage: (LISINOPRIL 10 MG/HYDROCHLOROTHIAZIDE 12.5 MG), DAILY

REACTIONS (1)
  - Drug ineffective [Unknown]
